FAERS Safety Report 7512209-9 (Version None)
Quarter: 2011Q2

REPORT INFORMATION
  Report Type: 
  Country: None (occurrence: None)
  Receive Date: 20110520
  Receipt Date: 20110510
  Transmission Date: 20111010
  Serious: Yes (Hospitalization)
  Sender: FDA-Public Use
  Company Number: GER/GER/11/0018314

PATIENT
  Age: 42 Year
  Sex: Male
  Weight: 100 kg

DRUGS (6)
  1. METOPROLOL TARTRATE [Concomitant]
  2. PLAVIX [Concomitant]
  3. ACETAMINOPHEN [Suspect]
     Indication: PAIN
     Dosage: 500 MG, 2 IN 1 D, ORAL
     Route: 048
     Dates: start: 20110314, end: 20110417
  4. ASPIRIN [Concomitant]
  5. RAMIPRIL [Suspect]
     Indication: ACUTE MYOCARDIAL INFARCTION
     Dosage: 5 MG, 2 IN 1 D, ORAL
     Route: 048
     Dates: start: 20110325, end: 20110418
  6. SIMVASTATIN [Suspect]
     Indication: ACUTE MYOCARDIAL INFARCTION
     Dosage: 40 MG, 1 IN 1 D, ORAL
     Route: 048
     Dates: start: 20110325, end: 20110415

REACTIONS (5)
  - ACUTE HEPATIC FAILURE [None]
  - CHOLECYSTITIS CHRONIC [None]
  - HEPATOTOXICITY [None]
  - CHOLELITHIASIS [None]
  - LIVER INJURY [None]
